FAERS Safety Report 10476581 (Version 1)
Quarter: 2014Q3

REPORT INFORMATION
  Report Type: Spontaneous
  Country: US (occurrence: None)
  Receive Date: 20140923
  Receipt Date: 20140923
  Transmission Date: 20150326
  Serious: No
  Sender: FDA-Public Use
  Company Number: 14AE040

PATIENT
  Age: 83 Year
  Sex: Female

DRUGS (1)
  1. IBUPROFEN. [Suspect]
     Active Substance: IBUPROFEN
     Dosage: 4 PER DAY
     Route: 048
     Dates: start: 20140824, end: 20140912

REACTIONS (1)
  - Alopecia [None]

NARRATIVE: CASE EVENT DATE: 20140824
